FAERS Safety Report 8572462-X (Version None)
Quarter: 2012Q3

REPORT INFORMATION
  Report Type: 
  Country: None (occurrence: None)
  Receive Date: 20120806
  Receipt Date: 20120731
  Transmission Date: 20120928
  Serious: Yes (Life-Threatening, Hospitalization)
  Sender: FDA-Public Use
  Company Number: DE-JNJFOC-20120800066

PATIENT
  Sex: Male

DRUGS (12)
  1. DEXAMETHASONE SODIUM PHOSPHATE [Suspect]
     Indication: MULTIPLE MYELOMA
     Route: 065
     Dates: start: 20120417, end: 20120428
  2. DOXORUBICIN HCL [Suspect]
     Route: 042
     Dates: start: 20120321, end: 20120401
  3. DOXORUBICIN HCL [Suspect]
     Indication: MULTIPLE MYELOMA
     Route: 042
     Dates: start: 20120417, end: 20120428
  4. DEXAMETHASONE SODIUM PHOSPHATE [Suspect]
     Route: 065
     Dates: start: 20120321, end: 20120401
  5. LENALIDOMIDE [Suspect]
     Indication: MULTIPLE MYELOMA
     Route: 065
     Dates: start: 20120521, end: 20120610
  6. VELCADE [Suspect]
     Indication: MULTIPLE MYELOMA
     Route: 065
     Dates: start: 20120301, end: 20120312
  7. VELCADE [Suspect]
     Route: 065
     Dates: start: 20120417, end: 20120428
  8. DEXAMETHASONE SODIUM PHOSPHATE [Suspect]
     Route: 065
     Dates: start: 20120521, end: 20120610
  9. ACYCLOVIR [Concomitant]
     Route: 065
     Dates: start: 20120301, end: 20120613
  10. VELCADE [Suspect]
     Route: 065
     Dates: start: 20120321, end: 20120401
  11. DEXAMETHASONE SODIUM PHOSPHATE [Suspect]
     Route: 065
     Dates: start: 20120301, end: 20120312
  12. COTRIM DS [Suspect]
     Indication: PRODUCT USED FOR UNKNOWN INDICATION
     Route: 065

REACTIONS (17)
  - PULMONARY SEPSIS [None]
  - PAIN [None]
  - RENAL FAILURE ACUTE [None]
  - ANAEMIA [None]
  - LEUKOPENIA [None]
  - VISUAL IMPAIRMENT [None]
  - HAEMANGIOMA OF SPLEEN [None]
  - PSEUDOMONAS INFECTION [None]
  - DECREASED APPETITE [None]
  - BRONCHOPULMONARY ASPERGILLOSIS [None]
  - THROMBOCYTOPENIA [None]
  - RESPIRATORY FAILURE [None]
  - PORTAL HYPERTENSION [None]
  - HYPERVISCOSITY SYNDROME [None]
  - SYNCOPE [None]
  - EPISTAXIS [None]
  - RASH [None]
